FAERS Safety Report 6871112-8 (Version None)
Quarter: 2010Q3

REPORT INFORMATION
  Report Type: 
  Country: None (occurrence: None)
  Receive Date: 20100723
  Receipt Date: 20100709
  Transmission Date: 20110219
  Serious: Yes (Hospitalization)
  Sender: FDA-Public Use
  Company Number: GB-RANBAXY-2010RR-35983

PATIENT
  Age: 13 Year
  Sex: Female
  Weight: 45 kg

DRUGS (2)
  1. IBUPROFEN [Suspect]
     Indication: TENDONITIS
     Dosage: 400 MG, TID
  2. PARACETAMOL [Suspect]
     Indication: TENDONITIS
     Dosage: 1 G, QID

REACTIONS (5)
  - ABDOMINAL DISCOMFORT [None]
  - CHEST DISCOMFORT [None]
  - FEELING HOT [None]
  - HYPERHIDROSIS [None]
  - PALPITATIONS [None]
